FAERS Safety Report 4694923-6 (Version None)
Quarter: 2005Q2

REPORT INFORMATION
  Report Type: 
  Country: None (occurrence: None)
  Receive Date: 20050620
  Receipt Date: 20050606
  Transmission Date: 20051028
  Serious: Yes (Other)
  Sender: FDA-Public Use
  Company Number: 2005084428

PATIENT
  Age: 29 Year
  Sex: Female
  Weight: 54.4316 kg

DRUGS (1)
  1. SUDAFED 12 HOUR [Suspect]
     Indication: SUICIDE ATTEMPT
     Dosage: 15-20 TABLETS ONCE, ORAL
     Route: 048
     Dates: start: 20050606, end: 20050606

REACTIONS (4)
  - HEART RATE INCREASED [None]
  - INTENTIONAL MISUSE [None]
  - OVERDOSE [None]
  - SUICIDE ATTEMPT [None]
